FAERS Safety Report 4892250-5 (Version None)
Quarter: 2006Q1

REPORT INFORMATION
  Report Type: 
  Country: None (occurrence: None)
  Receive Date: 20060125
  Receipt Date: 20060125
  Transmission Date: 20060701
  Serious: Yes (Hospitalization)
  Sender: FDA-Public Use
  Company Number: None

PATIENT
  Age: 47 Year
  Sex: Female
  Weight: 96.1626 kg

DRUGS (1)
  1. NAVANE [Suspect]
     Indication: SCHIZOPHRENIA
     Dosage: 10 MG   BID   PO
     Route: 048
     Dates: start: 20021210, end: 20030108

REACTIONS (1)
  - DISEASE RECURRENCE [None]
